FAERS Safety Report 7669280-3 (Version None)
Quarter: 2011Q3

REPORT INFORMATION
  Report Type: 
  Country: None (occurrence: None)
  Receive Date: 20110808
  Receipt Date: 20110802
  Transmission Date: 20111222
  Serious: Yes (Other)
  Sender: FDA-Public Use
  Company Number: PHEH2011US00540

PATIENT
  Sex: Female
  Weight: 77.564 kg

DRUGS (6)
  1. THYROID MEDICINE [Concomitant]
  2. RECLAST [Suspect]
     Route: 042
     Dates: start: 20110728
  3. VICODIN [Concomitant]
  4. IBUPROFEN [Concomitant]
  5. BLOOD PRESSURE [Concomitant]
  6. DIURETIC [Concomitant]

REACTIONS (3)
  - PAIN [None]
  - PARALYSIS [None]
  - MYALGIA [None]
